FAERS Safety Report 23797909 (Version 2)
Quarter: 2024Q2

REPORT INFORMATION
  Report Type: Spontaneous
  Country: IT (occurrence: IT)
  Receive Date: 20240430
  Receipt Date: 20240510
  Transmission Date: 20240716
  Serious: Yes (Hospitalization, Other)
  Sender: FDA-Public Use
  Company Number: IT-ORGANON-O2404ITA001170

PATIENT
  Age: 71 Year
  Sex: Female

DRUGS (1)
  1. ALENDRONIC ACID [Suspect]
     Active Substance: ALENDRONIC ACID
     Indication: Osteoporosis
     Dosage: 70 MILLIGRAM, EVERY WEEK (70 MILLIGRAM, QW (FOR THE PAST 5 YEARS))
     Route: 048
     Dates: start: 2019

REACTIONS (2)
  - Lumbar vertebral fracture [Recovered/Resolved]
  - Atypical fracture [Unknown]
